FAERS Safety Report 17555017 (Version 1)
Quarter: 2020Q1

REPORT INFORMATION
  Report Type: Spontaneous
  Country: US (occurrence: US)
  Receive Date: 20200309
  Receipt Date: 20200309
  Transmission Date: 20200409
  Serious: Yes (Disabling)
  Sender: FDA-Public Use
  Company Number: None

PATIENT
  Age: 70 Year
  Sex: Female
  Weight: 69.85 kg

DRUGS (23)
  1. LECITHAN [Concomitant]
  2. ALOE VERA [Concomitant]
     Active Substance: ALOE VERA LEAF
  3. COQ10 [Concomitant]
     Active Substance: UBIDECARENONE
  4. CARISOPHPDOL [Concomitant]
  5. MEPERIDINE [Concomitant]
     Active Substance: MEPERIDINE
  6. GLUCOSAMINE/CHONDROITED [Concomitant]
  7. ALPHA LIPOIC ACID [Concomitant]
     Active Substance: .ALPHA.-LIPOIC ACID
  8. WPOBENZYN [Concomitant]
  9. GARLIC. [Concomitant]
     Active Substance: GARLIC
  10. N.A.C. [Concomitant]
  11. CIPROFLOXACIN HCL 500MG TAB [Suspect]
     Active Substance: CIPROFLOXACIN
     Indication: URINARY TRACT INFECTION
     Dosage: ?          QUANTITY:14;OTHER FREQUENCY:2/DAY;?
     Route: 048
     Dates: start: 20200113, end: 20200121
  12. PROMETHAZINE [Concomitant]
     Active Substance: PROMETHAZINE HYDROCHLORIDE
  13. RUTIN [Concomitant]
     Active Substance: RUTIN
  14. L-LYSINE [Concomitant]
     Active Substance: LYSINE
  15. VITAMIN C [Concomitant]
     Active Substance: ASCORBIC ACID
  16. GREE TEA EXTRACT [Concomitant]
  17. BIOTIN [Concomitant]
     Active Substance: BIOTIN
  18. TYLENOL [Concomitant]
     Active Substance: ACETAMINOPHEN
  19. PREDNISONE. [Concomitant]
     Active Substance: PREDNISONE
  20. MAGNESIUM [Concomitant]
     Active Substance: MAGNESIUM
  21. VITAMIN E [Concomitant]
     Active Substance: .ALPHA.-TOCOPHEROL
  22. VIT D [Concomitant]
     Active Substance: VITAMIN D NOS
  23. MULTI VIT [Concomitant]
     Active Substance: VITAMINS

REACTIONS (6)
  - Dysuria [None]
  - Tendon injury [None]
  - Blood urine present [None]
  - Muscle injury [None]
  - Condition aggravated [None]
  - Haemorrhage urinary tract [None]

NARRATIVE: CASE EVENT DATE: 20200115
